FAERS Safety Report 7131906-0 (Version None)
Quarter: 2010Q4

REPORT INFORMATION
  Report Type: 
  Country: None (occurrence: None)
  Receive Date: 20101202
  Receipt Date: 20101129
  Transmission Date: 20110411
  Serious: Yes (Hospitalization, Disabling, Other)
  Sender: FDA-Public Use
  Company Number: US-PFIZER INC-2010095312

PATIENT
  Sex: Female

DRUGS (4)
  1. CHANTIX [Suspect]
     Indication: SMOKING CESSATION THERAPY
     Dosage: 1 STARTER PACK; CONTINUOUS PACK WITH FOUR REFILLS
     Dates: start: 20080918, end: 20090101
  2. MIRAPEX [Concomitant]
     Indication: RESTLESS LEGS SYNDROME
     Dosage: UNK
     Dates: start: 20030101, end: 20090101
  3. SYNTHROID [Concomitant]
     Indication: HYPOTHYROIDISM
     Dosage: UNK
     Dates: start: 20020101, end: 20090101
  4. OXYCODONE [Concomitant]
     Indication: PAIN
     Dosage: UNK
     Dates: start: 20060101, end: 20090101

REACTIONS (9)
  - ANXIETY [None]
  - DEPRESSION [None]
  - FALL [None]
  - INTENTIONAL OVERDOSE [None]
  - JOINT INJURY [None]
  - PANIC ATTACK [None]
  - PNEUMONIA ASPIRATION [None]
  - RESPIRATORY FAILURE [None]
  - SUICIDE ATTEMPT [None]
